FAERS Safety Report 18235587 (Version 1)
Quarter: 2020Q3

REPORT INFORMATION
  Report Type: Spontaneous
  Country: US (occurrence: US)
  Receive Date: 20200905
  Receipt Date: 20200905
  Transmission Date: 20201103
  Serious: No
  Sender: FDA-Public Use
  Company Number: US-ACCORD-172446

PATIENT
  Sex: Female

DRUGS (1)
  1. NALTREXONE ACCORD [Suspect]
     Active Substance: NALTREXONE HYDROCHLORIDE
     Indication: ALCOHOL USE
     Dosage: STRENGTH: 50 MG

REACTIONS (1)
  - Drug screen positive [Unknown]
